FAERS Safety Report 5271571-0 (Version None)
Quarter: 2007Q1

REPORT INFORMATION
  Report Type: 
  Country: None (occurrence: None)
  Receive Date: 20070316
  Receipt Date: 20070309
  Transmission Date: 20070707
  Serious: Yes (Hospitalization, Other)
  Sender: FDA-Public Use
  Company Number: 163-20785-07020995

PATIENT
  Age: 71 Year
  Sex: Female
  Weight: 101 kg

DRUGS (2)
  1. THALOMID [Suspect]
     Indication: UTERINE CANCER
     Dosage: SEE IMAGE
     Route: 048
     Dates: start: 20070125, end: 20070217
  2. THALOMID [Suspect]
     Indication: UTERINE CANCER
     Dosage: SEE IMAGE
     Route: 048
     Dates: start: 20070222

REACTIONS (14)
  - ACTIVITIES OF DAILY LIVING IMPAIRED [None]
  - ATELECTASIS [None]
  - BLOOD CREATININE INCREASED [None]
  - CONSTIPATION [None]
  - DEHYDRATION [None]
  - DEPRESSED LEVEL OF CONSCIOUSNESS [None]
  - DISEASE PROGRESSION [None]
  - DRUG TOXICITY [None]
  - FAILURE TO THRIVE [None]
  - NAUSEA [None]
  - OEDEMA PERIPHERAL [None]
  - PERFORMANCE STATUS DECREASED [None]
  - PNEUMONIA [None]
  - SOMNOLENCE [None]
